FAERS Safety Report 17928639 (Version 1)
Quarter: 2020Q2

REPORT INFORMATION
  Report Type: Spontaneous
  Country: US (occurrence: US)
  Receive Date: 20200622
  Receipt Date: 20200622
  Transmission Date: 20200714
  Serious: Yes (Hospitalization)
  Sender: FDA-Public Use
  Company Number: None

PATIENT
  Age: 47 Year
  Sex: Female

DRUGS (27)
  1. ALPRAZOLAM. [Concomitant]
     Active Substance: ALPRAZOLAM
  2. AMOX/K CLAV [Concomitant]
     Active Substance: AMOXICILLIN\CLAVULANATE POTASSIUM
  3. ASPIRIN LOW D3 [Concomitant]
  4. GABAPENTIN. [Concomitant]
     Active Substance: GABAPENTIN
  5. ENBREL [Suspect]
     Active Substance: ETANERCEPT
     Indication: RHEUMATOID ARTHRITIS
     Dosage: ?          OTHER DOSE:1 PEN ;?
     Route: 058
     Dates: start: 20180517
  6. AMOXICILLIN. [Concomitant]
     Active Substance: AMOXICILLIN
  7. FEROSUL [Concomitant]
     Active Substance: FERROUS SULFATE
  8. FLUTICASONE. [Concomitant]
     Active Substance: FLUTICASONE
  9. FOLIC ACID. [Concomitant]
     Active Substance: FOLIC ACID
  10. NEO/POLY/HC [Concomitant]
     Active Substance: HYDROCORTISONE\NEOMYCIN\POLYMYXIN B SULFATE
  11. OMPRAZOLE [Concomitant]
     Active Substance: OMEPRAZOLE
  12. PLAQUENIL [Concomitant]
     Active Substance: HYDROXYCHLOROQUINE SULFATE
  13. VIT D3/VIT C [Concomitant]
  14. FERROUS SULF [Concomitant]
     Active Substance: FERROUS SULFATE
  15. HYDROXCHLOR [Concomitant]
  16. MELOXICAM. [Concomitant]
     Active Substance: MELOXICAM
  17. OXYCODONE AND ACETAMINOPHEN [Concomitant]
     Active Substance: ACETAMINOPHEN\OXYCODONE HYDROCHLORIDE
  18. PREDNISONE. [Concomitant]
     Active Substance: PREDNISONE
  19. TRAMADOL HCL [Concomitant]
     Active Substance: TRAMADOL HYDROCHLORIDE
  20. VITAMIN D3 [Concomitant]
     Active Substance: CHOLECALCIFEROL
  21. XANAX [Concomitant]
     Active Substance: ALPRAZOLAM
  22. PREMPRO [Concomitant]
     Active Substance: ESTROGENS, CONJUGATED\MEDROXYPROGESTERONE ACETATE
  23. METHOTREXATE MIRTAZAPINE [Concomitant]
  24. OXCODONE [Concomitant]
  25. ACETAMIN [Concomitant]
     Active Substance: ACETAMINOPHEN
  26. PAROXETINE PAXIL [Concomitant]
  27. TRAZODONE [Concomitant]
     Active Substance: TRAZODONE HYDROCHLORIDE

REACTIONS (1)
  - Knee arthroplasty [None]

NARRATIVE: CASE EVENT DATE: 202006
